FAERS Safety Report 16669084 (Version 3)
Quarter: 2019Q4

REPORT INFORMATION
  Report Type: Spontaneous
  Country: RO (occurrence: RO)
  Receive Date: 20190805
  Receipt Date: 20191021
  Transmission Date: 20200122
  Serious: Yes (Hospitalization, Other)
  Sender: FDA-Public Use
  Company Number: RO-ELI_LILLY_AND_COMPANY-RO201907012996

PATIENT
  Age: 56 Year
  Sex: Male

DRUGS (4)
  1. DUPLECOR [Concomitant]
  2. CORYOL [CARVEDILOL] [Concomitant]
  3. IXEKIZUMAB [Suspect]
     Active Substance: IXEKIZUMAB
     Indication: PRODUCT USED FOR UNKNOWN INDICATION
     Dosage: UNK, UNKNOWN
     Route: 065
  4. COAPROVEL [Concomitant]
     Active Substance: HYDROCHLOROTHIAZIDE\IRBESARTAN

REACTIONS (9)
  - Pyelonephritis [Unknown]
  - Sepsis [Unknown]
  - Anaemia [Unknown]
  - Henoch-Schonlein purpura [Unknown]
  - Fall [Unknown]
  - Joint injury [Unknown]
  - Acute kidney injury [Unknown]
  - White blood cell count increased [Unknown]
  - Confusional state [Unknown]
